FAERS Safety Report 4796723-5 (Version None)
Quarter: 2005Q4

REPORT INFORMATION
  Report Type: 
  Country: None (occurrence: None)
  Receive Date: 20051007
  Receipt Date: 20051003
  Transmission Date: 20060501
  Serious: Yes (Death)
  Sender: FDA-Public Use
  Company Number: GBWYE575511APR05

PATIENT
  Age: 45 Year
  Sex: Female

DRUGS (4)
  1. EFFEXOR XR [Suspect]
     Indication: DEPRESSION
     Dosage: 225 MG ORAL; 50 MG
     Route: 048
     Dates: start: 20020101, end: 20040101
  2. EFFEXOR XR [Suspect]
     Indication: DEPRESSION
     Dosage: 225 MG ORAL; 50 MG
     Route: 048
     Dates: start: 20040101
  3. SULPIRIDE (SULPIRIDE) [Suspect]
     Dosage: 200
  4. INSULIN [Concomitant]

REACTIONS (1)
  - SUDDEN DEATH [None]
